FAERS Safety Report 10256214 (Version 1)
Quarter: 2014Q2

REPORT INFORMATION
  Report Type: Spontaneous
  Country: US (occurrence: US)
  Receive Date: 20140624
  Receipt Date: 20140624
  Transmission Date: 20141212
  Serious: No
  Sender: FDA-Public Use
  Company Number: US-ZOGENIX, INC.-2012ZX000114

PATIENT
  Sex: Female

DRUGS (1)
  1. SUMAVEL DOSEPRO [Suspect]
     Indication: MIGRAINE
     Dates: start: 20120328, end: 20120328

REACTIONS (1)
  - Drug ineffective [Not Recovered/Not Resolved]
